FAERS Safety Report 17760316 (Version 2)
Quarter: 2020Q2

REPORT INFORMATION
  Report Type: Spontaneous
  Country: US (occurrence: US)
  Receive Date: 20200508
  Receipt Date: 20200508
  Transmission Date: 20200714
  Serious: Yes (Other)
  Sender: FDA-Public Use
  Company Number: US-GILEAD-2020-0463730

PATIENT
  Age: 57 Year
  Sex: Female

DRUGS (3)
  1. PANTOPRAZOLE [Concomitant]
     Active Substance: PANTOPRAZOLE
     Indication: HIATUS HERNIA
  2. BIKTARVY [Suspect]
     Active Substance: BICTEGRAVIR SODIUM\EMTRICITABINE\TENOFOVIR ALAFENAMIDE FUMARATE
     Indication: HIV INFECTION
     Dosage: UNK
     Route: 065
     Dates: start: 2018
  3. PANTOPRAZOLE [Concomitant]
     Active Substance: PANTOPRAZOLE
     Indication: GASTROOESOPHAGEAL REFLUX DISEASE
     Dosage: 80 MG
     Route: 065
     Dates: start: 1990

REACTIONS (13)
  - Acidosis [Unknown]
  - CD4 lymphocyte percentage decreased [Unknown]
  - Blood glucose decreased [Unknown]
  - Dysuria [Unknown]
  - Hypersomnia [Unknown]
  - Fatigue [Unknown]
  - Anorectal discomfort [Unknown]
  - Headache [Unknown]
  - Asthenia [Unknown]
  - Lethargy [Unknown]
  - CD4 lymphocytes decreased [Unknown]
  - Nausea [Unknown]
  - Pneumonia [Unknown]

NARRATIVE: CASE EVENT DATE: 201910
